FAERS Safety Report 14835560 (Version 1)
Quarter: 2018Q2

REPORT INFORMATION
  Report Type: Spontaneous
  Country: AT (occurrence: AT)
  Receive Date: 20180502
  Receipt Date: 20180502
  Transmission Date: 20180711
  Serious: Yes (Death, Other)
  Sender: FDA-Public Use
  Company Number: AT-ASTELLAS-2018US019991

PATIENT
  Age: 45 Year
  Sex: Male

DRUGS (5)
  1. TACROLIMUS. [Suspect]
     Active Substance: TACROLIMUS
     Indication: RENAL TRANSPLANT
     Dosage: UNK UNK, UNKNOWN FREQ.
     Route: 065
  2. MYCOPHENOLATE MOFETIL. [Suspect]
     Active Substance: MYCOPHENOLATE MOFETIL
     Indication: RENAL TRANSPLANT
     Dosage: UNK, UNKNOWN FREQ.
     Route: 065
  3. RITUXIMAB. [Suspect]
     Active Substance: RITUXIMAB
     Indication: POST TRANSPLANT LYMPHOPROLIFERATIVE DISORDER
     Dosage: UNK UNK, CYCLIC
     Route: 065
     Dates: start: 201004
  4. TACROLIMUS. [Suspect]
     Active Substance: TACROLIMUS
     Dosage: UNK UNK, UNKNOWN FREQ.
     Route: 065
  5. BENDAMUSTINE HYDROCHLORIDE. [Suspect]
     Active Substance: BENDAMUSTINE HYDROCHLORIDE
     Indication: POST TRANSPLANT LYMPHOPROLIFERATIVE DISORDER
     Dosage: UNK, CYCLIC
     Route: 042
     Dates: start: 201104

REACTIONS (5)
  - Seminoma [Unknown]
  - JC polyomavirus test positive [Fatal]
  - Progressive multifocal leukoencephalopathy [Fatal]
  - Post transplant lymphoproliferative disorder [Unknown]
  - Product use in unapproved indication [Unknown]
